FAERS Safety Report 5075936-1 (Version None)
Quarter: 2006Q3

REPORT INFORMATION
  Report Type: 
  Country: None (occurrence: None)
  Receive Date: 20060714
  Receipt Date: 20060503
  Transmission Date: 20061208
  Serious: No
  Sender: FDA-Public Use
  Company Number: 2006SP001939

PATIENT
  Age: 92 Year
  Sex: Male
  Weight: 58.514 kg

DRUGS (5)
  1. LUNESTA [Suspect]
     Indication: INSOMNIA
     Dosage: SEE IMAGE
     Route: 048
     Dates: start: 20060301, end: 20060501
  2. LUNESTA [Suspect]
     Indication: INSOMNIA
     Dosage: SEE IMAGE
     Route: 048
     Dates: start: 20060502, end: 20060502
  3. LEXAPRO [Concomitant]
  4. WARFARIN [Concomitant]
  5. AMBIEN [Concomitant]

REACTIONS (1)
  - SOMNOLENCE [None]
